FAERS Safety Report 10307008 (Version 2)
Quarter: 2014Q3

REPORT INFORMATION
  Report Type: Spontaneous
  Country: CA (occurrence: CA)
  Receive Date: 20140715
  Receipt Date: 20140718
  Transmission Date: 20150326
  Serious: Yes (Other)
  Sender: FDA-Public Use
  Company Number: PHHY2014CA085763

PATIENT
  Sex: Male

DRUGS (1)
  1. CLOZARIL [Suspect]
     Active Substance: CLOZAPINE
     Dosage: UNK

REACTIONS (5)
  - White blood cell count decreased [Unknown]
  - Respiratory disorder [Unknown]
  - Splenomegaly [Unknown]
  - Interstitial lung disease [Unknown]
  - Lupus-like syndrome [Unknown]
